FAERS Safety Report 8849600 (Version 1)
Quarter: 2012Q4

REPORT INFORMATION
  Report Type: Spontaneous
  Country: US (occurrence: None)
  Receive Date: 20121018
  Receipt Date: 20121018
  Transmission Date: 20130627
  Serious: Yes (Other)
  Sender: FDA-Public Use
  Company Number: None

PATIENT
  Sex: Female
  Weight: 67.3 kg

DRUGS (1)
  1. LANSOPRAZOLE [Suspect]
     Indication: GERD
     Route: 048
     Dates: start: 2010

REACTIONS (3)
  - Product substitution issue [None]
  - Spinal pain [None]
  - Reaction to drug excipients [None]
